FAERS Safety Report 21114662 (Version 1)
Quarter: 2022Q3

REPORT INFORMATION
  Report Type: Spontaneous
  Country: US (occurrence: US)
  Receive Date: 20220721
  Receipt Date: 20220721
  Transmission Date: 20221027
  Serious: No
  Sender: FDA-Public Use
  Company Number: US-MEDEXUS PHARMA, INC.-2022MED00206

PATIENT
  Sex: Female

DRUGS (12)
  1. RASUVO [Suspect]
     Active Substance: METHOTREXATE SODIUM
     Dosage: 17.5 MG, 1X/WEEK
     Dates: end: 202202
  2. BUPROPION [Concomitant]
     Active Substance: BUPROPION
  3. CARVEDILOL [Concomitant]
     Active Substance: CARVEDILOL
  4. CLOPIDOGREL [Concomitant]
     Active Substance: CLOPIDOGREL BISULFATE
  5. INDAPAMIDE [Concomitant]
     Active Substance: INDAPAMIDE
  6. METFORMIN [Concomitant]
     Active Substance: METFORMIN HYDROCHLORIDE
  7. POTASSIUM CHLORIDE [Concomitant]
     Active Substance: POTASSIUM CHLORIDE
  8. ESCITALOPRAM [Concomitant]
     Active Substance: ESCITALOPRAM OXALATE
  9. TRAMADOL [Concomitant]
     Active Substance: TRAMADOL
  10. HYDROXYCHLOROQUINE [Concomitant]
     Active Substance: HYDROXYCHLOROQUINE
  11. GABAPENTIN [Concomitant]
     Active Substance: GABAPENTIN
  12. FOLIC ACID [Concomitant]
     Active Substance: FOLIC ACID

REACTIONS (1)
  - Malaise [Not Recovered/Not Resolved]

NARRATIVE: CASE EVENT DATE: 20220101
